FAERS Safety Report 8517638-2 (Version None)
Quarter: 2012Q3

REPORT INFORMATION
  Report Type: 
  Country: None (occurrence: None)
  Receive Date: 20120718
  Receipt Date: 20120705
  Transmission Date: 20120928
  Serious: No
  Sender: FDA-Public Use
  Company Number: US-BAYER-2012-068632

PATIENT
  Age: 53 Year
  Sex: Female

DRUGS (1)
  1. BETASERON [Suspect]
     Indication: MULTIPLE SCLEROSIS
     Dosage: .25 MG, QOD
     Route: 058
     Dates: start: 20120301

REACTIONS (6)
  - DISCOMFORT [None]
  - OEDEMA PERIPHERAL [None]
  - SKIN WARM [None]
  - APATHY [None]
  - DEPRESSION [None]
  - FEELING OF DESPAIR [None]
